FAERS Safety Report 8027327-9 (Version None)
Quarter: 2012Q1

REPORT INFORMATION
  Report Type: 
  Country: None (occurrence: None)
  Receive Date: 20120106
  Receipt Date: 20111230
  Transmission Date: 20120608
  Serious: Yes (Hospitalization)
  Sender: FDA-Public Use
  Company Number: FR-BRISTOL-MYERS SQUIBB COMPANY-16326753

PATIENT
  Age: 61 Year
  Sex: Male

DRUGS (5)
  1. GLUCOPHAGE [Suspect]
     Indication: TYPE 2 DIABETES MELLITUS
     Dosage: FORMULATION-TABLET
     Route: 048
     Dates: end: 20110924
  2. PREDNISOLONE [Concomitant]
  3. PROPRANOLOL [Concomitant]
  4. ALDACTONE [Suspect]
     Dosage: THERAPY STOPPED
     Route: 048
  5. VALSARTAN [Suspect]
     Dosage: FORMULATION-TABLET
     Route: 048

REACTIONS (2)
  - SEPTIC SHOCK [None]
  - LACTIC ACIDOSIS [None]
